FAERS Safety Report 11971801 (Version 3)
Quarter: 2016Q1

REPORT INFORMATION
  Report Type: Report from Study
  Country: US (occurrence: US)
  Receive Date: 20160128
  Receipt Date: 20160329
  Transmission Date: 20160526
  Serious: Yes (Other)
  Sender: FDA-Public Use
  Company Number: US-BAYER-2015-491561

PATIENT
  Age: 54 Year
  Sex: Female

DRUGS (1)
  1. STIVARGA [Suspect]
     Active Substance: REGORAFENIB
     Indication: COLORECTAL CANCER
     Dosage: 120 MG, QD
     Route: 048
     Dates: start: 20151210

REACTIONS (21)
  - Blood pressure increased [None]
  - Neuropathy peripheral [None]
  - Fatigue [None]
  - Arthralgia [None]
  - Vomiting [None]
  - Pain in extremity [None]
  - Blood pressure increased [None]
  - Sinus congestion [None]
  - Weight decreased [None]
  - Decreased appetite [None]
  - Nausea [None]
  - Rhinorrhoea [None]
  - Fatigue [None]
  - Palmar-plantar erythrodysaesthesia syndrome [None]
  - Rash [None]
  - Influenza [None]
  - Palmar-plantar erythrodysaesthesia syndrome [None]
  - Burning sensation [None]
  - Decreased appetite [None]
  - Exfoliative rash [None]
  - Dysphonia [None]

NARRATIVE: CASE EVENT DATE: 201512
